FAERS Safety Report 6300015-2 (Version None)
Quarter: 2009Q3

REPORT INFORMATION
  Report Type: 
  Country: None (occurrence: None)
  Receive Date: 20090806
  Receipt Date: 20090729
  Transmission Date: 20100115
  Serious: Yes (Other)
  Sender: FDA-Public Use
  Company Number: NZ-GENENTECH-287455

PATIENT
  Sex: Male
  Weight: 1.705 kg

DRUGS (5)
  1. HERCEPTIN [Suspect]
     Indication: BREAST CANCER
     Dosage: UNK
     Route: 064
  2. TAMOXIFEN [Concomitant]
     Indication: BREAST CANCER
     Dosage: UNK
     Route: 064
  3. METHADONE HCL [Concomitant]
     Indication: DRUG USE FOR UNKNOWN INDICATION
     Route: 064
  4. AMOXICILLIN [Concomitant]
     Indication: PREMATURE RUPTURE OF MEMBRANES
     Dosage: UNK
     Route: 064
  5. NIFEDIPINE [Concomitant]
     Indication: PREMATURE LABOUR
     Dosage: UNK
     Route: 064

REACTIONS (4)
  - BLOOD CREATININE INCREASED [None]
  - CAESAREAN SECTION [None]
  - DRUG EXPOSURE DURING PREGNANCY [None]
  - PREMATURE BABY [None]
